FAERS Safety Report 10161204 (Version 1)
Quarter: 2014Q2

REPORT INFORMATION
  Report Type: Spontaneous
  Country: US (occurrence: US)
  Receive Date: 20140508
  Receipt Date: 20140508
  Transmission Date: 20141212
  Serious: Yes (Hospitalization, Other)
  Sender: FDA-Public Use
  Company Number: US-RB-066855-14

PATIENT
  Age: 0 Year
  Sex: Female

DRUGS (9)
  1. SUBOXONE FILM [Suspect]
     Indication: DRUG DEPENDENCE
     Dosage: SUBOXONE FILM
     Route: 064
     Dates: start: 201305, end: 20130701
  2. SUBUTEX [Suspect]
     Indication: DRUG DEPENDENCE
     Route: 064
     Dates: start: 20130701, end: 20140202
  3. SUBUTEX [Suspect]
     Route: 063
     Dates: start: 20140202, end: 201402
  4. NICOTINE [Concomitant]
     Indication: PRODUCT USED FOR UNKNOWN INDICATION
     Dosage: DOSING DETAILS UNKNOWN
     Route: 064
     Dates: end: 201306
  5. LUNESTA [Concomitant]
     Indication: SLEEP DISORDER
     Route: 064
     Dates: start: 201305, end: 201306
  6. ASPIRIN [Concomitant]
     Indication: ANTIPHOSPHOLIPID SYNDROME
     Route: 064
     Dates: start: 201307, end: 20140202
  7. ASPIRIN [Concomitant]
     Route: 063
     Dates: start: 20140202, end: 201402
  8. HEPARIN [Concomitant]
     Dosage: MATERNAL DOSING DETAILS UNKNOWN
     Route: 064
     Dates: start: 201307, end: 20140202
  9. HEPARIN [Concomitant]
     Indication: COAGULOPATHY
     Dosage: MATERNAL DOSING DETAILS UNKNOWN
     Route: 063
     Dates: start: 20140202, end: 201402

REACTIONS (4)
  - Foetal exposure during pregnancy [Recovered/Resolved]
  - Neonatal respiratory distress syndrome [Recovered/Resolved]
  - Exposure during breast feeding [Recovered/Resolved]
  - Low birth weight baby [Recovered/Resolved]
